FAERS Safety Report 6831366-0 (Version None)
Quarter: 2010Q3

REPORT INFORMATION
  Report Type: 
  Country: None (occurrence: None)
  Receive Date: 20100712
  Receipt Date: 20100701
  Transmission Date: 20110219
  Serious: Yes (Other)
  Sender: FDA-Public Use
  Company Number: US-AMGEN-QUU421927

PATIENT
  Sex: Female

DRUGS (1)
  1. ENBREL [Suspect]
     Indication: RHEUMATOID ARTHRITIS
     Route: 058
     Dates: start: 20100520

REACTIONS (4)
  - ENDOMETRIOSIS [None]
  - HAEMOGLOBIN DECREASED [None]
  - OVARIAN CYST [None]
  - VAGINAL HAEMORRHAGE [None]
